FAERS Safety Report 18285863 (Version 1)
Quarter: 2020Q3

REPORT INFORMATION
  Report Type: Spontaneous
  Country: ES (occurrence: ES)
  Receive Date: 20200919
  Receipt Date: 20200919
  Transmission Date: 20201103
  Serious: Yes (Hospitalization)
  Sender: FDA-Public Use
  Company Number: ES-ACCORD-201611

PATIENT
  Age: 63 Year
  Sex: Male

DRUGS (3)
  1. RALTITREXED [Suspect]
     Active Substance: RALTITREXED
     Indication: COLON CANCER METASTATIC
     Route: 042
     Dates: start: 20200623, end: 20200704
  2. CAPECITABINE ACCORD [Suspect]
     Active Substance: CAPECITABINE
     Indication: COLON CANCER METASTATIC
     Dosage: 1800 MG EVERY 12 HOURS, STRENGTH: 500 MG, 120 TABLETS
     Route: 048
     Dates: start: 20200601, end: 20200623
  3. OXALIPLATIN ACCORD [Suspect]
     Active Substance: OXALIPLATIN
     Indication: COLON CANCER METASTATIC
     Dosage: UNKNOWN, STRENGTH: 5 MG/ ML, 1 VIAL OF 10 ML
     Route: 042
     Dates: start: 20200601, end: 20200623

REACTIONS (4)
  - Enteritis [Recovered/Resolved]
  - Vomiting [Recovered/Resolved]
  - Neutropenia [Recovered/Resolved]
  - Diarrhoea [Recovered/Resolved]

NARRATIVE: CASE EVENT DATE: 20200625
